FAERS Safety Report 23438018 (Version 1)
Quarter: 2024Q1

REPORT INFORMATION
  Report Type: Spontaneous
  Country: US (occurrence: US)
  Receive Date: 20240124
  Receipt Date: 20240124
  Transmission Date: 20240410
  Serious: No
  Sender: FDA-Public Use
  Company Number: US-AMGEN-USASP2024010609

PATIENT
  Age: 62 Year
  Sex: Female

DRUGS (3)
  1. BLINCYTO [Suspect]
     Active Substance: BLINATUMOMAB
     Indication: B precursor type acute leukaemia
     Dosage: UNK
     Route: 065
  2. BLINCYTO [Suspect]
     Active Substance: BLINATUMOMAB
     Indication: Minimal residual disease
     Dosage: 28 MICROGRAM, QD (196 MG TOTAL DOSE ORDERED)
     Route: 065
     Dates: start: 20240108, end: 20240116
  3. BLINCYTO [Suspect]
     Active Substance: BLINATUMOMAB
     Dosage: 28 MICROGRAM, QD (196 MG TOTAL DOSE ORDERED)
     Route: 065
     Dates: start: 202401

REACTIONS (2)
  - Wrong technique in product usage process [Unknown]
  - Product administration interrupted [Unknown]
